FAERS Safety Report 6907910-1 (Version None)
Quarter: 2010Q3

REPORT INFORMATION
  Report Type: 
  Country: None (occurrence: None)
  Receive Date: 20100805
  Receipt Date: 20100728
  Transmission Date: 20110219
  Serious: Yes (Hospitalization)
  Sender: FDA-Public Use
  Company Number: US-BAXTER-2010BH019145

PATIENT
  Age: 64 Year
  Sex: Male
  Weight: 108 kg

DRUGS (13)
  1. GAMMAGARD S/D [Suspect]
     Indication: IMMUNODEFICIENCY COMMON VARIABLE
     Route: 042
     Dates: start: 20100607, end: 20100607
  2. GAMMAGARD S/D [Suspect]
     Indication: PRIMARY IMMUNODEFICIENCY SYNDROME
     Route: 042
     Dates: start: 20100607, end: 20100607
  3. GAMMAGARD S/D [Suspect]
     Route: 042
     Dates: start: 20100715, end: 20100715
  4. GAMMAGARD S/D [Suspect]
     Route: 042
     Dates: start: 20100715, end: 20100715
  5. VERAPAMIL [Concomitant]
     Indication: MIGRAINE
     Route: 048
  6. MONOPRIL [Concomitant]
     Indication: HYPERTENSION
     Route: 048
  7. PROZAC [Concomitant]
     Indication: DEPRESSION
     Route: 048
  8. PRILOSEC [Concomitant]
     Indication: GASTROOESOPHAGEAL REFLUX DISEASE
     Route: 048
  9. CEFTIN [Concomitant]
     Indication: SINUSITIS
     Route: 048
  10. VITAMIN D [Concomitant]
     Route: 048
  11. ASPIRIN [Concomitant]
     Route: 048
  12. XALATAN [Concomitant]
     Indication: GLAUCOMA
     Route: 031
  13. COSOPT [Concomitant]
     Indication: GLAUCOMA
     Route: 031

REACTIONS (1)
  - CHEST PAIN [None]
